FAERS Safety Report 13338909 (Version 2)
Quarter: 2017Q1

REPORT INFORMATION
  Report Type: Spontaneous
  Country: AU (occurrence: AU)
  Receive Date: 20170315
  Receipt Date: 20170324
  Transmission Date: 20170428
  Serious: Yes (Hospitalization)
  Sender: FDA-Public Use
  Company Number: AU-009507513-1703AUS004759

PATIENT
  Age: 83 Year
  Sex: Male

DRUGS (2)
  1. KEYTRUDA [Suspect]
     Active Substance: PEMBROLIZUMAB
     Indication: MALIGNANT MELANOMA
     Dosage: ADMNISTERED ON THE RIGHT SIDE OF THE BODY
     Dates: start: 2015
  2. KEYTRUDA [Suspect]
     Active Substance: PEMBROLIZUMAB
     Dosage: ADMNISTERED ON THE LEFT SIDE OF THE BODY

REACTIONS (3)
  - Blister [Unknown]
  - Vascular injury [Unknown]
  - Pain of skin [Unknown]
